FAERS Safety Report 10238599 (Version 2)
Quarter: 2014Q2

REPORT INFORMATION
  Report Type: Spontaneous
  Country: US (occurrence: US)
  Receive Date: 20140616
  Receipt Date: 20140616
  Transmission Date: 20141212
  Serious: Yes (Hospitalization)
  Sender: FDA-Public Use
  Company Number: US-009507513-2010SP058813

PATIENT
  Sex: Female
  Weight: 91.63 kg

DRUGS (1)
  1. NUVARING [Suspect]
     Indication: MENSTRUAL CYCLE MANAGEMENT
     Dosage: UNK
     Dates: start: 20081108, end: 20081129

REACTIONS (7)
  - Intracranial venous sinus thrombosis [Recovered/Resolved]
  - Sinusitis [Unknown]
  - Hypercoagulation [Unknown]
  - Hypokalaemia [Unknown]
  - Tympanosclerosis [Unknown]
  - Migraine [Not Recovered/Not Resolved]
  - Off label use [Unknown]
